FAERS Safety Report 14600795 (Version 2)
Quarter: 2018Q1

REPORT INFORMATION
  Report Type: Report from Study
  Country: IT (occurrence: IT)
  Receive Date: 20180305
  Receipt Date: 20180308
  Transmission Date: 20180509
  Serious: Yes (Hospitalization)
  Sender: FDA-Public Use
  Company Number: IT-DSJP-DSE-2018-108150

PATIENT

DRUGS (8)
  1. NORVASC [Suspect]
     Active Substance: AMLODIPINE BESYLATE
     Indication: HYPERTENSION
     Dosage: 5 MG, QD
     Dates: start: 20170101, end: 20170606
  2. PANTOPRAZOLE [Concomitant]
     Active Substance: PANTOPRAZOLE
     Indication: PRODUCT USED FOR UNKNOWN INDICATION
  3. FUROSEMIDE. [Suspect]
     Active Substance: FUROSEMIDE
     Indication: HYPERTENSION
     Dosage: 50 MG, QD
     Dates: start: 20170101, end: 20170606
  4. EUTIROX [Concomitant]
     Active Substance: LEVOTHYROXINE SODIUM
     Indication: PRODUCT USED FOR UNKNOWN INDICATION
  5. PLAUNAZIDE [Suspect]
     Active Substance: HYDROCHLOROTHIAZIDE\OLMESARTAN MEDOXOMIL
     Indication: HYPERTENSION
     Dates: start: 20170101, end: 20170606
  6. TOTALIP [Concomitant]
     Active Substance: ATORVASTATIN
     Indication: PRODUCT USED FOR UNKNOWN INDICATION
  7. ZYLORIC [Concomitant]
     Active Substance: ALLOPURINOL
     Indication: PRODUCT USED FOR UNKNOWN INDICATION
  8. TORVAST [Concomitant]
     Active Substance: ATORVASTATIN
     Indication: PRODUCT USED FOR UNKNOWN INDICATION

REACTIONS (4)
  - Balance disorder [Unknown]
  - Hyponatraemia [Unknown]
  - Dysarthria [Unknown]
  - Gait disturbance [Unknown]

NARRATIVE: CASE EVENT DATE: 20170605
